FAERS Safety Report 8492514-2 (Version None)
Quarter: 2012Q2

REPORT INFORMATION
  Report Type: 
  Country: None (occurrence: None)
  Receive Date: 20120620
  Receipt Date: 20120611
  Transmission Date: 20120825
  Serious: Yes (Life-Threatening, Hospitalization)
  Sender: FDA-Public Use
  Company Number: 2012032615

PATIENT
  Age: 46 Year
  Sex: Male

DRUGS (3)
  1. JONOSTERIL /00351401/ (JONOSTERIL /00351401/) [Concomitant]
  2. BERINERT [Suspect]
     Indication: HEREDITARY ANGIOEDEMA
     Dosage: 1000 IU QD, 4  ML/MIN
     Route: 042
     Dates: start: 20120606, end: 20120606
  3. BERINERT [Suspect]
     Indication: ANGIOEDEMA
     Dosage: 1000 IU QD, 4  ML/MIN
     Route: 042
     Dates: start: 20120606, end: 20120606

REACTIONS (5)
  - TONGUE OEDEMA [None]
  - GAMMA-GLUTAMYLTRANSFERASE INCREASED [None]
  - ANAEMIA [None]
  - ACUTE RESPIRATORY FAILURE [None]
  - OBSTRUCTIVE AIRWAYS DISORDER [None]
